FAERS Safety Report 4977641-6 (Version None)
Quarter: 2006Q2

REPORT INFORMATION
  Report Type: 
  Country: None (occurrence: None)
  Receive Date: 20060420
  Receipt Date: 20051011
  Transmission Date: 20061013
  Serious: No
  Sender: FDA-Public Use
  Company Number: US-GLAXOSMITHKLINE-A0577860A

PATIENT
  Age: 51 Year
  Sex: Female

DRUGS (5)
  1. ESKALITH [Suspect]
     Dosage: 300MG THREE TIMES PER DAY
     Route: 048
     Dates: start: 20050901
  2. DEPAKOTE [Suspect]
     Indication: DRUG USE FOR UNKNOWN INDICATION
     Route: 065
  3. NEXIUM [Concomitant]
  4. SYNTHROID [Concomitant]
  5. PAXIL [Concomitant]

REACTIONS (5)
  - DIARRHOEA [None]
  - DRUG LEVEL BELOW THERAPEUTIC [None]
  - TREMOR [None]
  - VIRAL INFECTION [None]
  - VOMITING [None]
